FAERS Safety Report 8367384-3 (Version None)
Quarter: 2012Q2

REPORT INFORMATION
  Report Type: 
  Country: None (occurrence: None)
  Receive Date: 20120517
  Receipt Date: 20120510
  Transmission Date: 20120825
  Serious: Yes (Hospitalization)
  Sender: FDA-Public Use
  Company Number: US-TEVA-232760USA

PATIENT
  Sex: Female
  Weight: 90 kg

DRUGS (28)
  1. PANTOPRAZOLE [Concomitant]
     Indication: GASTROOESOPHAGEAL REFLUX DISEASE
     Dosage: 40 MILLIGRAM;
     Dates: start: 20091201, end: 20100328
  2. DEXAMETHASONE [Concomitant]
     Indication: PROPHYLAXIS
     Dosage: .7143 MILLIGRAM;
  3. OCTREOTIDE ACETATE [Concomitant]
     Indication: GASTROOESOPHAGEAL REFLUX DISEASE
     Dates: start: 20091201
  4. MAGIC MOUTH WASH [Concomitant]
     Indication: MUCOSAL INFLAMMATION
     Dosage: 5 ML;
     Route: 048
     Dates: start: 20100329, end: 20100607
  5. FLUOROURACIL [Suspect]
     Route: 042
     Dates: start: 20100503
  6. ACETAMINOPHEN [Concomitant]
     Indication: ARTHRITIS
     Dosage: 1000 MILLIGRAM;
     Dates: start: 20050101
  7. ONDANSETRON [Concomitant]
     Indication: NAUSEA
     Dosage: 16 MILLIGRAM;
     Dates: start: 20100403, end: 20100630
  8. POTASSIUM EFFERVESCENT [Concomitant]
     Indication: HYPOKALAEMIA
     Dosage: 40 MILLIEQUIVALENTS;
     Dates: start: 20100322, end: 20100322
  9. PROCHLORPERAZINE EDISYLATE [Concomitant]
  10. LEUCOVORIN CALCIUM [Suspect]
     Indication: NEOPLASM
     Dosage: ON DAYS 1 AND 15 OF EACH 28 DAY CYCLE
     Route: 042
     Dates: start: 20100308
  11. IRINOTECAN HCL [Suspect]
     Route: 042
     Dates: start: 20100413, end: 20100413
  12. ACETAMINOPHEN [Concomitant]
     Indication: ABDOMINAL PAIN
  13. ABT-888 (VELIPARIB) [Suspect]
     Indication: NEOPLASM
     Dosage: 20 MILLIGRAM; CYCKE 2 ON DAYS 1-5 AND 15-19 OF EVERY 28 DAY CYCLE
     Route: 048
  14. LOPERAMIDE [Concomitant]
     Dosage: 1-2 TAB EVERY TWO HOURS PRN
     Dates: start: 19900101
  15. CALCIUM CARBONATE [Concomitant]
     Indication: GASTROOESOPHAGEAL REFLUX DISEASE
     Dates: start: 20091201, end: 20100901
  16. FLUOROURACIL [Suspect]
     Route: 042
     Dates: start: 20100322, end: 20100324
  17. FLUOROURACIL [Suspect]
     Route: 042
     Dates: start: 20100413, end: 20100415
  18. IRINOTECAN HCL [Suspect]
     Route: 042
     Dates: start: 20100503
  19. ONDANSETRON [Concomitant]
  20. LOPERAMIDE [Concomitant]
     Indication: DIARRHOEA
     Dosage: 1-2 TAB EVERY TWO HOURS PRN
     Dates: start: 20100311
  21. FLUOXETINE HYDROCHLORIDE [Concomitant]
     Indication: DEPRESSION
     Dosage: 20 MILLIGRAM;
     Dates: start: 19850101
  22. CETIRIZINE HYDROCHLORIDE [Concomitant]
     Indication: SEASONAL ALLERGY
     Dosage: 10 MILLIGRAM;
     Dates: start: 20100318, end: 20100726
  23. PROCHLORPERAZINE EDISYLATE [Concomitant]
     Indication: PROPHYLAXIS OF NAUSEA AND VOMITING
     Dosage: .7143 MILLIGRAM;
     Dates: start: 20100308
  24. FLUOROURACIL [Suspect]
     Indication: NEOPLASM
     Dosage: OVER 46-48 HOURS, DAYS 1-3 AND 15-17 OF EACH 28 DAY CYCLE
     Route: 042
     Dates: start: 20100308, end: 20100310
  25. IRINOTECAN HCL [Suspect]
     Indication: NEOPLASM
     Dosage: ON DAY 1 AND 5 OF EACH 21 DAY CYCLE
     Route: 042
     Dates: start: 20100308, end: 20100322
  26. VIGRAN [Concomitant]
     Indication: ROUTINE HEALTH MAINTENANCE
     Route: 048
     Dates: start: 20091201
  27. ONDANSETRON [Concomitant]
     Indication: PROPHYLAXIS OF NAUSEA AND VOMITING
     Dosage: 4MG/5ML, PRN
     Dates: start: 20100308, end: 20100630
  28. ATROPINE [Concomitant]
     Indication: PROPHYLAXIS AGAINST DIARRHOEA
     Dosage: .0357 MG/ML;
     Dates: start: 20100308

REACTIONS (1)
  - SMALL INTESTINAL OBSTRUCTION [None]
